FAERS Safety Report 6203100-9 (Version None)
Quarter: 2009Q2

REPORT INFORMATION
  Report Type: 
  Country: None (occurrence: None)
  Receive Date: 20090527
  Receipt Date: 20090522
  Transmission Date: 20091009
  Serious: Yes (Hospitalization)
  Sender: FDA-Public Use
  Company Number: ES-JNJFOC-20090505337

PATIENT
  Age: 85 Year
  Sex: Male

DRUGS (5)
  1. TAVANIC [Suspect]
     Indication: PNEUMONIA
     Route: 042
  2. ROCEFALIN [Suspect]
     Indication: PNEUMONIA
     Route: 042
  3. IPRATROPIUM BROMIDE [Concomitant]
     Route: 055
  4. BUPHENINE HYDROCHLORIDE [Concomitant]
     Route: 065
  5. PULMICORT [Concomitant]
     Route: 048

REACTIONS (2)
  - GASTROINTESTINAL HAEMORRHAGE [None]
  - THROMBOCYTOPENIA [None]
